FAERS Safety Report 12421671 (Version 1)
Quarter: 2016Q2

REPORT INFORMATION
  Report Type: Spontaneous
  Country: US (occurrence: US)
  Receive Date: 20160531
  Receipt Date: 20160531
  Transmission Date: 20160815
  Serious: Yes (Hospitalization, Other)
  Sender: FDA-Public Use
  Company Number: US-MDT-ADR-2015-02343

PATIENT
  Age: 32 Year
  Sex: Male

DRUGS (13)
  1. PHENOBARBITAL. [Suspect]
     Active Substance: PHENOBARBITAL
     Route: 065
  2. LIORESAL [Suspect]
     Active Substance: BACLOFEN
     Route: 037
  3. SERTRALINE [Suspect]
     Active Substance: SERTRALINE HYDROCHLORIDE
     Route: 065
  4. COUMADIN [Suspect]
     Active Substance: WARFARIN SODIUM
     Route: 065
  5. ALBUTEROL SULFATE. [Suspect]
     Active Substance: ALBUTEROL SULFATE
     Route: 065
  6. AMANTADINE [Suspect]
     Active Substance: AMANTADINE
     Route: 065
  7. PERCOCET [Suspect]
     Active Substance: ACETAMINOPHEN\OXYCODONE HYDROCHLORIDE
     Route: 065
  8. LACTOBACILLIN [Suspect]
     Active Substance: PROBIOTICS NOS
     Route: 065
  9. POTASSIUM CHLORIDE. [Suspect]
     Active Substance: POTASSIUM CHLORIDE
     Route: 065
  10. BROCHO MORPHINE [Suspect]
     Active Substance: MORPHINE
     Route: 065
  11. METOPROLOL. [Suspect]
     Active Substance: METOPROLOL
     Route: 065
  12. TYLENOL [Suspect]
     Active Substance: ACETAMINOPHEN
     Route: 065
  13. COLACE [Suspect]
     Active Substance: DOCUSATE SODIUM
     Route: 065

REACTIONS (4)
  - Incorrect route of drug administration [Recovered/Resolved]
  - Dyspnoea [Recovered/Resolved]
  - Medical device site swelling [Recovered/Resolved]
  - Injection site extravasation [Recovered/Resolved]

NARRATIVE: CASE EVENT DATE: 20151207
